FAERS Safety Report 24421990 (Version 1)
Quarter: 2024Q4

REPORT INFORMATION
  Report Type: Spontaneous
  Country: US (occurrence: US)
  Receive Date: 20241010
  Receipt Date: 20241010
  Transmission Date: 20250114
  Serious: Yes (Hospitalization, Other)
  Sender: PROCTER AND GAMBLE
  Company Number: US-PROCTER+GAMBLE-PH24007629

PATIENT
  Age: 66 Year
  Sex: Female

DRUGS (1)
  1. CALCIUM CARBONATE [Suspect]
     Active Substance: CALCIUM CARBONATE
     Dosage: UNK
     Route: 048

REACTIONS (18)
  - Milk-alkali syndrome [Unknown]
  - Pancreatitis [Unknown]
  - Hypercalcaemia [Recovered/Resolved]
  - Mental status changes [Unknown]
  - Loss of consciousness [Unknown]
  - Disseminated intravascular coagulation [Unknown]
  - Metabolic acidosis [Unknown]
  - Metabolic alkalosis [Unknown]
  - Thrombocytopenia [Unknown]
  - Anaemia [Unknown]
  - Hypertransaminasaemia [Unknown]
  - Hypocalcaemia [Unknown]
  - Lipase increased [Unknown]
  - Blood parathyroid hormone decreased [Unknown]
  - Vitamin D decreased [Unknown]
  - Red blood cell schistocytes present [Unknown]
  - Blood pH increased [Unknown]
  - Overdose [Unknown]
